FAERS Safety Report 18706070 (Version 6)
Quarter: 2021Q2

REPORT INFORMATION
  Report Type: Report from Study
  Country: BE (occurrence: BE)
  Receive Date: 20210106
  Receipt Date: 20210401
  Transmission Date: 20210717
  Serious: Yes (Hospitalization, Other)
  Sender: FDA-Public Use
  Company Number: BE-JNJFOC-20201242956

PATIENT
  Age: 73 Year
  Sex: Male
  Weight: 86 kg

DRUGS (11)
  1. AMIODARONE [Concomitant]
     Active Substance: AMIODARONE
     Dosage: 200 MG, QD
     Dates: start: 20160822, end: 20201220
  2. ASA [Suspect]
     Active Substance: ASPIRIN
     Indication: CORONARY ARTERY DISEASE
     Dosage: 80 MG, QD
     Route: 048
     Dates: start: 20170210
  3. ASA [Suspect]
     Active Substance: ASPIRIN
     Indication: PERIPHERAL ARTERIAL OCCLUSIVE DISEASE
  4. RIVAROXABAN [Suspect]
     Active Substance: RIVAROXABAN
     Indication: CORONARY ARTERY DISEASE
     Dosage: 2.5 MG, BID
     Route: 048
     Dates: start: 20200706, end: 20210110
  5. THIAMAZOL [Concomitant]
     Active Substance: METHIMAZOLE
     Dosage: 10 MG, TID
     Dates: start: 20201220
  6. PROPYLTHIOURACIL. [Concomitant]
     Active Substance: PROPYLTHIOURACIL
     Dosage: 100 MG, QD
     Dates: start: 20210112
  7. TRAMADOL. [Concomitant]
     Active Substance: TRAMADOL
     Dosage: 100 MG, PRN
     Dates: start: 20201223
  8. STRUMAZOLE [Concomitant]
     Indication: BLOOD THYROID STIMULATING HORMONE INCREASED
     Dosage: 10 MG, TID
  9. RIVAROXABAN [Suspect]
     Active Substance: RIVAROXABAN
     Indication: PERIPHERAL ARTERIAL OCCLUSIVE DISEASE
     Dosage: 2.5 MG, BID
     Route: 048
     Dates: start: 20210116, end: 20210201
  10. RIVAROXABAN [Suspect]
     Active Substance: RIVAROXABAN
     Indication: CORONARY ARTERY DISEASE
     Dosage: 2.5 MG, BID
     Route: 048
     Dates: start: 20210203
  11. BURINEX [Concomitant]
     Active Substance: BUMETANIDE
     Dosage: UNK

REACTIONS (8)
  - Lumbar spinal stenosis [Not Recovered/Not Resolved]
  - Anaemia [Recovering/Resolving]
  - Acute kidney injury [Recovering/Resolving]
  - Nausea [Recovered/Resolved]
  - Hyperthyroidism [Not Recovered/Not Resolved]
  - Intervertebral disc protrusion [Not Recovered/Not Resolved]
  - Hyperthyroidism [Recovered/Resolved]
  - Osteopenia [Recovered/Resolved]

NARRATIVE: CASE EVENT DATE: 20201219
